FAERS Safety Report 4977731-8 (Version None)
Quarter: 2006Q2

REPORT INFORMATION
  Report Type: 
  Country: None (occurrence: None)
  Receive Date: 20060414
  Receipt Date: 20060404
  Transmission Date: 20061013
  Serious: Yes (Other)
  Sender: FDA-Public Use
  Company Number: GBWYE596319APR05

PATIENT
  Age: 42 Year
  Sex: Male

DRUGS (5)
  1. RAPAMUNE [Suspect]
     Indication: IMMUNOSUPPRESSION
     Dosage: 2 + 1 MG 1X PER 1 DAY ORAL - SEE IMAGE
     Route: 048
     Dates: end: 20040115
  2. RAPAMUNE [Suspect]
     Indication: IMMUNOSUPPRESSION
     Dosage: 2 + 1 MG 1X PER 1 DAY ORAL - SEE IMAGE
     Route: 048
     Dates: start: 20030913
  3. IMMUNOSUPPRRESSIVE AGENTS (IMMUNOSUPPRESSIVE AGENTS) [Concomitant]
  4. FUROSEMIDE [Concomitant]
  5. ENALAPRIL MALEATE [Concomitant]

REACTIONS (2)
  - GLOMERULONEPHRITIS MINIMAL LESION [None]
  - NEPHROTIC SYNDROME [None]
